FAERS Safety Report 5702263-9 (Version None)
Quarter: 2008Q2

REPORT INFORMATION
  Report Type: 
  Country: None (occurrence: None)
  Receive Date: 20080411
  Receipt Date: 20071024
  Transmission Date: 20081010
  Serious: No
  Sender: FDA-Public Use
  Company Number: US-ABBOTT-07P-163-0422611-00

PATIENT
  Sex: Female

DRUGS (5)
  1. DEPAKOTE TABLETS 500MG [Suspect]
     Indication: BIPOLAR DISORDER
     Route: 048
     Dates: start: 20070501
  2. OLANZAPINE [Concomitant]
     Indication: DRUG USE FOR UNKNOWN INDICATION
  3. BUPROPION HCL [Concomitant]
     Indication: DRUG USE FOR UNKNOWN INDICATION
  4. CABERGOLINE [Concomitant]
     Indication: DRUG USE FOR UNKNOWN INDICATION
  5. YAZ [Concomitant]
     Indication: ORAL CONTRACEPTION

REACTIONS (2)
  - DEPRESSION [None]
  - WEIGHT INCREASED [None]
